FAERS Safety Report 15038264 (Version 1)
Quarter: 2018Q2

REPORT INFORMATION
  Report Type: Spontaneous
  Country: US (occurrence: US)
  Receive Date: 20180530
  Receipt Date: 20180530
  Transmission Date: 20180711
  Serious: No
  Sender: FDA-Public Use
  Company Number: None

PATIENT
  Age: 57 Year
  Sex: Female

DRUGS (1)
  1. TEMOZOLOMIDE CAP [Suspect]
     Active Substance: TEMOZOLOMIDE
     Dosage: ?          OTHER FREQUENCY:OTHER;?
     Route: 048
     Dates: start: 20160505, end: 20160805

REACTIONS (2)
  - Disease recurrence [None]
  - Brain neoplasm [None]

NARRATIVE: CASE EVENT DATE: 20180529
